FAERS Safety Report 12844761 (Version 1)
Quarter: 2016Q4

REPORT INFORMATION
  Report Type: Spontaneous
  Country: US (occurrence: US)
  Receive Date: 20161013
  Receipt Date: 20161013
  Transmission Date: 20170207
  Serious: No
  Sender: FDA-Public Use
  Company Number: US-ROCHE-1656341

PATIENT
  Age: 53 Year
  Sex: Female

DRUGS (2)
  1. VEMURAFENIB [Suspect]
     Active Substance: VEMURAFENIB
     Indication: METASTATIC MALIGNANT MELANOMA
     Route: 065
     Dates: end: 201312
  2. IPILIMUMAB [Concomitant]
     Active Substance: IPILIMUMAB
     Route: 065

REACTIONS (1)
  - Rash pruritic [Unknown]
